FAERS Safety Report 4498862-5 (Version None)
Quarter: 2004Q3

REPORT INFORMATION
  Report Type: 
  Country: None (occurrence: None)
  Receive Date: 20040927
  Receipt Date: 20040622
  Transmission Date: 20050211
  Serious: No
  Sender: FDA-Public Use
  Company Number: USA040670758

PATIENT
  Age: 44 Year
  Sex: Female
  Weight: 49 kg

DRUGS (1)
  1. STRATTERA [Suspect]
     Indication: ATTENTION DEFICIT/HYPERACTIVITY DISORDER
     Dosage: 80 MG/2 DAY
     Dates: start: 20040603, end: 20040619

REACTIONS (3)
  - DIZZINESS [None]
  - MUSCLE CRAMP [None]
  - PRESCRIBED OVERDOSE [None]
